FAERS Safety Report 5811312-9 (Version None)
Quarter: 2008Q3

REPORT INFORMATION
  Report Type: 
  Country: None (occurrence: None)
  Receive Date: 20080711
  Receipt Date: 20071108
  Transmission Date: 20090109
  Serious: Yes (Other)
  Sender: FDA-Public Use
  Company Number: PHEH2007US13080

PATIENT
  Age: 3 Year
  Sex: Male

DRUGS (3)
  1. TRILEPTAL [Suspect]
     Indication: CONVULSION
     Dosage: 5ML, BID, ORAL
     Route: 048
     Dates: start: 20080127
  2. ALLEGRA (FEXOFENADINE HYDROCHLORIDE) SUSPENSION 30/5MG/ML [Concomitant]
  3. DIASTAT [Concomitant]

REACTIONS (1)
  - CONVULSION [None]
